FAERS Safety Report 7492821-6 (Version None)
Quarter: 2011Q2

REPORT INFORMATION
  Report Type: 
  Country: None (occurrence: None)
  Receive Date: 20110512
  Receipt Date: 20110503
  Transmission Date: 20111010
  Serious: Yes (Other)
  Sender: FDA-Public Use
  Company Number: B0718154A

PATIENT
  Age: 12 Year
  Sex: Female

DRUGS (2)
  1. MELPHALAN (MELPHALAN) (FORMULATION UNKNOWN) (GENERIC) [Suspect]
     Indication: ACUTE MYELOID LEUKAEMIA
  2. STEM CELL TRANSPLANT [Concomitant]

REACTIONS (5)
  - HYPERTHYROIDISM [None]
  - HYPOTHYROIDISM [None]
  - PYREXIA [None]
  - THYROIDITIS [None]
  - TACHYCARDIA [None]
